FAERS Safety Report 5217743-2 (Version None)
Quarter: 2007Q1

REPORT INFORMATION
  Report Type: 
  Country: None (occurrence: None)
  Receive Date: 20070124
  Receipt Date: 20070115
  Transmission Date: 20070707
  Serious: Yes (Other)
  Sender: FDA-Public Use
  Company Number: US-JNJFOC-20061201838

PATIENT
  Sex: Female
  Weight: 72.58 kg

DRUGS (2)
  1. TOPAMAX [Suspect]
     Indication: CONVULSION PROPHYLAXIS
     Route: 048
  2. NEURONTIN [Concomitant]

REACTIONS (2)
  - BLOOD CREATINE PHOSPHOKINASE ABNORMAL [None]
  - MYALGIA [None]
